FAERS Safety Report 23470110 (Version 3)
Quarter: 2025Q2

REPORT INFORMATION
  Report Type: Spontaneous
  Country: IT (occurrence: IT)
  Receive Date: 20240202
  Receipt Date: 20250517
  Transmission Date: 20250716
  Serious: Yes (Other)
  Sender: AUROBINDO
  Company Number: IT-ASGENIA-AS2024000231

PATIENT
  Age: 18 Month
  Sex: Female

DRUGS (2)
  1. MELATONIN [Suspect]
     Active Substance: MELATONIN
     Indication: Product used for unknown indication
  2. VALERIAN EXTRACT [Suspect]
     Active Substance: VALERIAN EXTRACT
     Indication: Product used for unknown indication
     Route: 065

REACTIONS (3)
  - Haemorrhage neonatal [Recovered/Resolved]
  - Foetal exposure during pregnancy [Unknown]
  - Exposure via breast milk [Unknown]
